FAERS Safety Report 8157215-9 (Version None)
Quarter: 2012Q1

REPORT INFORMATION
  Report Type: 
  Country: None (occurrence: None)
  Receive Date: 20120222
  Receipt Date: 20120222
  Transmission Date: 20120608
  Serious: Yes (Other)
  Sender: FDA-Public Use
  Company Number: None

PATIENT
  Sex: Female
  Weight: 12.2 kg

DRUGS (5)
  1. ROCURONIUM BROMIDE [Suspect]
     Indication: RESPIRATORY FAILURE
     Dosage: 14.4 MG
     Route: 042
     Dates: start: 20120216, end: 20120216
  2. SODIUM CHLORIDE [Concomitant]
  3. CEFTRIAXONE [Concomitant]
  4. DOPAMINE HCL [Concomitant]
  5. ETOMIDATE [Concomitant]

REACTIONS (2)
  - PRODUCT QUALITY ISSUE [None]
  - DRUG INEFFECTIVE [None]
